FAERS Safety Report 15170173 (Version 1)
Quarter: 2018Q3

REPORT INFORMATION
  Report Type: Spontaneous
  Country: US (occurrence: US)
  Receive Date: 20180720
  Receipt Date: 20180720
  Transmission Date: 20181010
  Serious: No
  Sender: FDA-Public Use
  Company Number: US-PFIZER INC-2018291734

PATIENT
  Sex: Female

DRUGS (1)
  1. CYTOMEL [Suspect]
     Active Substance: LIOTHYRONINE SODIUM
     Dosage: UNK

REACTIONS (9)
  - Amnesia [Unknown]
  - Tremor [Unknown]
  - Anosmia [Unknown]
  - Drug effect incomplete [Unknown]
  - Ageusia [Unknown]
  - Sedation [Unknown]
  - Anxiety [Unknown]
  - Malaise [Unknown]
  - Fatigue [Unknown]
